FAERS Safety Report 5156031-X (Version None)
Quarter: 2006Q4

REPORT INFORMATION
  Report Type: 
  Country: None (occurrence: None)
  Receive Date: 20061122
  Receipt Date: 20060926
  Transmission Date: 20070319
  Serious: Yes (Hospitalization)
  Sender: FDA-Public Use
  Company Number: NLWYE038527SEP06

PATIENT
  Age: 22 Year
  Sex: Female

DRUGS (2)
  1. ENBREL [Suspect]
     Indication: RHEUMATOID ARTHRITIS
     Dates: start: 19991201, end: 20030601
  2. ENBREL [Suspect]
     Dates: start: 20050501, end: 20050527

REACTIONS (5)
  - AMNIOTIC FLUID VOLUME DECREASED [None]
  - CHOLELITHIASIS [None]
  - DRUG EXPOSURE DURING PREGNANCY [None]
  - PREMATURE LABOUR [None]
  - VACUUM EXTRACTOR DELIVERY [None]
